FAERS Safety Report 9408988 (Version 1)
Quarter: 2013Q3

REPORT INFORMATION
  Report Type: Spontaneous
  Country: US (occurrence: None)
  Receive Date: 20130717
  Receipt Date: 20130717
  Transmission Date: 20140515
  Serious: Yes (Other)
  Sender: FDA-Public Use
  Company Number: None

PATIENT
  Age: 50 Year
  Sex: Female
  Weight: 96 kg

DRUGS (1)
  1. STIVARGA [Suspect]
     Indication: RECTAL CANCER
     Route: 048
     Dates: start: 20130116

REACTIONS (4)
  - Urinary tract infection [None]
  - Hydronephrosis [None]
  - Oral pain [None]
  - Blister [None]
